FAERS Safety Report 12192954 (Version 2)
Quarter: 2016Q2

REPORT INFORMATION
  Report Type: Report from Study
  Country: US (occurrence: US)
  Receive Date: 20160318
  Receipt Date: 20160512
  Transmission Date: 20160815
  Serious: Yes (Death, Other)
  Sender: FDA-Public Use
  Company Number: US-KADMON PHARMACEUTICALS, LLC-KAD201603-001021

PATIENT
  Age: 59 Year
  Sex: Male
  Weight: 66.67 kg

DRUGS (15)
  1. OXYBUTYNIN [Concomitant]
     Active Substance: OXYBUTYNIN
     Route: 062
  2. SPIRIVA [Concomitant]
     Active Substance: TIOTROPIUM BROMIDE MONOHYDRATE
  3. RIBAVIRIN. [Suspect]
     Active Substance: RIBAVIRIN
     Indication: HEPATITIS C
     Route: 048
     Dates: start: 20160216, end: 20160229
  4. LACTULOSE. [Concomitant]
     Active Substance: LACTULOSE
  5. PROCET (HYDROCODONE-ACETAMINOPHEN) [Concomitant]
  6. MELOXICAM. [Concomitant]
     Active Substance: MELOXICAM
  7. XIFAXAN [Concomitant]
     Active Substance: RIFAXIMIN
  8. KLONOPIN [Suspect]
     Active Substance: CLONAZEPAM
  9. ASPIRIN. [Concomitant]
     Active Substance: ASPIRIN
  10. BACLOFEN. [Concomitant]
     Active Substance: BACLOFEN
  11. OXYBUTYNIN CHLORIDE. [Concomitant]
     Active Substance: OXYBUTYNIN CHLORIDE
  12. FLUTICASONE [Concomitant]
     Active Substance: FLUTICASONE\FLUTICASONE PROPIONATE
  13. VENTOLIN HFA [Concomitant]
     Active Substance: ALBUTEROL SULFATE
  14. VIEKIRA PAK [Suspect]
     Active Substance: DASABUVIR\OMBITASVIR\PARITAPREVIR\RITONAVIR
     Indication: HEPATITIS C
     Dosage: TABLET
     Route: 048
     Dates: start: 20160216, end: 20160229
  15. SINGULAIR [Concomitant]
     Active Substance: MONTELUKAST SODIUM

REACTIONS (2)
  - Gun shot wound [Fatal]
  - Completed suicide [Fatal]

NARRATIVE: CASE EVENT DATE: 20160229
